FAERS Safety Report 26068921 (Version 1)
Quarter: 2025Q4

REPORT INFORMATION
  Report Type: Spontaneous
  Country: US (occurrence: US)
  Receive Date: 20251120
  Receipt Date: 20251120
  Transmission Date: 20260118
  Serious: No
  Sender: BRISTOL-MYERS SQUIBB COMPANY
  Company Number: US-BRISTOL-MYERS SQUIBB COMPANY-2025-155465

PATIENT
  Age: 4 Week
  Sex: Male

DRUGS (2)
  1. ENASIDENIB [Suspect]
     Active Substance: ENASIDENIB
     Indication: 2-Hydroxyglutaric aciduria
  2. ENASIDENIB [Suspect]
     Active Substance: ENASIDENIB
     Indication: Heart transplant

REACTIONS (1)
  - Off label use [Unknown]
